FAERS Safety Report 9315528 (Version 1)
Quarter: 2013Q2

REPORT INFORMATION
  Report Type: Spontaneous
  Country: US (occurrence: US)
  Receive Date: 20130529
  Receipt Date: 20130529
  Transmission Date: 20140414
  Serious: Yes (Hospitalization, Other)
  Sender: FDA-Public Use
  Company Number: US-BAUSCH-BL-2013-003060

PATIENT
  Age: 71 Year
  Sex: Female
  Weight: 53.57 kg

DRUGS (1)
  1. DESMOPRESSIN ACETATE NASAL SOLUTION 0.01% [Suspect]
     Indication: HYPOPITUITARISM
     Dosage: 1 SPRAY IN ONE NOSTRIL, ONCE DAILY
     Route: 048
     Dates: start: 2010

REACTIONS (3)
  - Blood sodium decreased [Recovered/Resolved]
  - Loss of consciousness [Recovered/Resolved]
  - Accidental overdose [Recovered/Resolved]
